FAERS Safety Report 7239417-9 (Version None)
Quarter: 2011Q1

REPORT INFORMATION
  Report Type: 
  Country: None (occurrence: None)
  Receive Date: 20110121
  Receipt Date: 20101230
  Transmission Date: 20110831
  Serious: Yes (Death)
  Sender: FDA-Public Use
  Company Number: PHHY2010US90352

PATIENT
  Age: 43 Year
  Sex: Male

DRUGS (1)
  1. TOBI [Suspect]
     Indication: CYSTIC FIBROSIS
     Dosage: 300 MG, BID X 28 DAYS ON THEN 28 DAYS OFF
     Dates: start: 20100329, end: 20100426

REACTIONS (1)
  - DEATH [None]
